FAERS Safety Report 26022415 (Version 1)
Quarter: 2025Q4

REPORT INFORMATION
  Report Type: Spontaneous
  Country: US (occurrence: US)
  Receive Date: 20251110
  Receipt Date: 20251110
  Transmission Date: 20260118
  Serious: No
  Sender: BAUSCH AND LOMB
  Company Number: US-BAUSCH-BH-2025-019788

PATIENT
  Age: 58 Year
  Sex: Female
  Weight: 61.23 kg

DRUGS (3)
  1. JUBLIA [Suspect]
     Active Substance: EFINACONAZOLE
     Indication: Onychomycosis
     Route: 065
  2. EVENITY [Concomitant]
     Active Substance: ROMOSOZUMAB-AQQG
     Indication: Product used for unknown indication
  3. EFFEXOR [Concomitant]
     Active Substance: VENLAFAXINE HYDROCHLORIDE
     Indication: Product used for unknown indication

REACTIONS (5)
  - Application site swelling [Unknown]
  - Bacterial infection [Unknown]
  - Localised infection [Unknown]
  - Application site erythema [Unknown]
  - Inappropriate schedule of product administration [Unknown]

NARRATIVE: CASE EVENT DATE: 20250101
